FAERS Safety Report 9175346 (Version 2)
Quarter: 2013Q1

REPORT INFORMATION
  Report Type: Report from Study
  Country: IT (occurrence: IT)
  Receive Date: 20130320
  Receipt Date: 20130327
  Transmission Date: 20140127
  Serious: Yes (Death)
  Sender: FDA-Public Use
  Company Number: IT-ROCHE-1203103

PATIENT
  Sex: 0

DRUGS (1)
  1. ALTEPLASE [Suspect]
     Indication: ISCHAEMIC STROKE
     Dosage: 0.9 MG PER KILOGRAM (MAXIMUM 90 MG)WITH 10% GIVEN AS AN INITIAL BOLUS AND THE REMAINING 90% AS A CON
     Route: 042

REACTIONS (1)
  - Death [Fatal]
